FAERS Safety Report 23471926 (Version 1)
Quarter: 2024Q1

REPORT INFORMATION
  Report Type: Spontaneous
  Country: ZA (occurrence: ZA)
  Receive Date: 20240202
  Receipt Date: 20240202
  Transmission Date: 20240410
  Serious: Yes (Death, Hospitalization)
  Sender: FDA-Public Use
  Company Number: ZA-ABBOTT-2024A-1377018

PATIENT
  Age: 84 Year
  Sex: Male

DRUGS (7)
  1. CREON [Suspect]
     Active Substance: PANCRELIPASE AMYLASE\PANCRELIPASE LIPASE\PANCRELIPASE PROTEASE
     Indication: Product used for unknown indication
     Dosage: CREON 10000 (PANCREATIN) 150 MG TAKE ?ONE CAPSULE THREE TIMES A DAY
     Route: 048
  2. DS 24 [Concomitant]
     Indication: Product used for unknown indication
     Dosage: DS-24 (VITAMINS) TAKE ONE ?CAPSULE DAILY
  3. ESOMEPRAZOLE MAGNESIUM [Concomitant]
     Active Substance: ESOMEPRAZOLE\ESOMEPRAZOLE MAGNESIUM\ESOMEPRAZOLE MAGNESIUM DIHYDRATE
     Indication: Ulcer
     Dosage: NEXMEZOL (ESMOERPRAZOLE) 40 MG TAKE ONE TABLET DAILY
     Route: 048
  4. ELTROXIN LF [Concomitant]
     Indication: Thyroid disorder
     Dosage: ELTROXIN NEW FORMULATION?(LEVOTHYROXINE SODIUM) 75 MCG TAKE ?ONE TABLET IN THE MORNING
  5. Spiractin [Concomitant]
     Indication: Hypertension
     Dosage: SPIRACTIN(SPIRONOLACTONE) 25 MG TAKE ONE TABLET IN THE MORNING
     Route: 048
  6. DORMONOCT [Concomitant]
     Active Substance: LOPRAZOLAM
     Indication: Insomnia
     Dosage: DORMONOCT (BENZODIAZEPINE TRANQUILLISER) 2 MG TAKE ONE TABLET AT NIGHT
  7. TRAZODONE HYDROCHLORIDE [Concomitant]
     Active Substance: TRAZODONE HYDROCHLORIDE
     Indication: Depression
     Dosage: BIOTECH TRAZODONE?(TRAZODONE HYDROCHLORIDE) 50 MG TAKE ONE ?CAPSULE AT NIGHT
     Route: 048

REACTIONS (1)
  - Multiple organ dysfunction syndrome [Fatal]
